FAERS Safety Report 10303974 (Version 3)
Quarter: 2015Q3

REPORT INFORMATION
  Report Type: Spontaneous
  Country: US (occurrence: US)
  Receive Date: 20140714
  Receipt Date: 20150817
  Transmission Date: 20151125
  Serious: No
  Sender: FDA-Public Use
  Company Number: US-GILEAD-2013-0085480

PATIENT
  Age: 21 Year
  Sex: Female

DRUGS (3)
  1. TYVASO [Concomitant]
     Active Substance: TREPROSTINIL
     Indication: PRODUCT USED FOR UNKNOWN INDICATION
  2. LETAIRIS [Suspect]
     Active Substance: AMBRISENTAN
     Indication: PULMONARY HYPERTENSION
     Dosage: 10 MG, QD
     Dates: start: 20120404
  3. LETAIRIS [Suspect]
     Active Substance: AMBRISENTAN
     Indication: SICKLE CELL ANAEMIA

REACTIONS (5)
  - Asthenia [Unknown]
  - Pulmonary arterial pressure increased [Unknown]
  - Headache [Unknown]
  - Malaise [Unknown]
  - Fatigue [Unknown]
